FAERS Safety Report 5285057-0 (Version None)
Quarter: 2007Q2

REPORT INFORMATION
  Report Type: 
  Country: None (occurrence: None)
  Receive Date: 20070403
  Receipt Date: 20070328
  Transmission Date: 20071010
  Serious: Yes (Hospitalization)
  Sender: FDA-Public Use
  Company Number: GBWYE774120MAY04

PATIENT
  Sex: Male
  Weight: 74 kg

DRUGS (5)
  1. CYCLOSPORINE [Suspect]
     Indication: IMMUNOSUPPRESSANT DRUG THERAPY
     Dosage: 200MG, FREQUENCY UNKNOWN
     Route: 048
     Dates: start: 19961019
  2. LANSOPRAZOLE [Concomitant]
     Dosage: 30MG, FREQUENCY UNKNOWN
     Route: 048
     Dates: start: 20030613
  3. ATENOLOL [Concomitant]
     Dosage: 100MG, FREQUENCY UNKNOWN
     Route: 048
     Dates: start: 19961019
  4. PREDNISOLONE [Concomitant]
     Dosage: 5MG, FREQUENCY UNKNOWN
     Route: 048
     Dates: start: 19961019
  5. AZATHIOPRINE [Concomitant]
     Dosage: 50MG, FREQUENCY UNKNOWN
     Route: 048
     Dates: start: 19961019

REACTIONS (3)
  - RENAL FAILURE CHRONIC [None]
  - VOMITING [None]
  - WEIGHT DECREASED [None]
